FAERS Safety Report 23747806 (Version 1)
Quarter: 2024Q2

REPORT INFORMATION
  Report Type: Spontaneous
  Country: US (occurrence: None)
  Receive Date: 20240416
  Receipt Date: 20240416
  Transmission Date: 20240716
  Serious: No
  Sender: FDA-Public Use
  Company Number: None

PATIENT
  Age: 79 Year
  Sex: Male
  Weight: 89.6 kg

DRUGS (2)
  1. TAXOTERE [Suspect]
     Active Substance: DOCETAXEL
  2. GEMCITABINE HYDROCHLORIDE [Suspect]
     Active Substance: GEMCITABINE HYDROCHLORIDE

REACTIONS (9)
  - Cerebellar infarction [None]
  - Hypercoagulation [None]
  - Encephalopathy [None]
  - Screaming [None]
  - Ischaemic stroke [None]
  - Neurotoxicity [None]
  - General physical health deterioration [None]
  - Agitation [None]
  - Embolic stroke [None]

NARRATIVE: CASE EVENT DATE: 20240405
